FAERS Safety Report 8081550-6 (Version None)
Quarter: 2012Q1

REPORT INFORMATION
  Report Type: 
  Country: None (occurrence: None)
  Receive Date: 20120130
  Receipt Date: 20120119
  Transmission Date: 20120608
  Serious: Yes (Other)
  Sender: FDA-Public Use
  Company Number: GB-BAXTER-2012BH002141

PATIENT
  Sex: Male

DRUGS (4)
  1. GAMMAGARD LIQUID [Suspect]
     Route: 042
     Dates: start: 20111217, end: 20111217
  2. GAMMAGARD LIQUID [Suspect]
     Route: 042
     Dates: start: 20111127, end: 20111127
  3. GAMMAGARD LIQUID [Suspect]
     Indication: IMMUNODEFICIENCY COMMON VARIABLE
     Route: 042
     Dates: start: 20120108, end: 20120108
  4. GAMMAGARD LIQUID [Suspect]
     Route: 042
     Dates: start: 20120117, end: 20120117

REACTIONS (7)
  - SWOLLEN TONGUE [None]
  - DYSPEPSIA [None]
  - MALAISE [None]
  - PRURITUS GENERALISED [None]
  - RASH GENERALISED [None]
  - ABDOMINAL PAIN [None]
  - EYE SWELLING [None]
